FAERS Safety Report 5043758-3 (Version None)
Quarter: 2006Q2

REPORT INFORMATION
  Report Type: 
  Country: None (occurrence: None)
  Receive Date: 20060628
  Receipt Date: 20060607
  Transmission Date: 20061013
  Serious: Yes (Hospitalization)
  Sender: FDA-Public Use
  Company Number: US200604003026

PATIENT
  Age: 73 Year
  Sex: Female
  Weight: 50.8 kg

DRUGS (2)
  1. FORTEO [Suspect]
     Indication: OSTEOPOROSIS
     Dosage: 20 UG, DAILY (1/D)
     Dates: start: 20040101
  2. FORTEO [Concomitant]

REACTIONS (1)
  - HIP FRACTURE [None]
